FAERS Safety Report 19601484 (Version 1)
Quarter: 2021Q3

REPORT INFORMATION
  Report Type: Spontaneous
  Country: US (occurrence: US)
  Receive Date: 20210722
  Receipt Date: 20210722
  Transmission Date: 20211014
  Serious: No
  Sender: FDA-Public Use
  Company Number: 2020SGN02730

PATIENT
  Sex: Female

DRUGS (7)
  1. TUKYSA [Suspect]
     Active Substance: TUCATINIB
     Dosage: 150 MG 2 PILLS IN THE MORNING AND EVENING, 600 DAILY), BID
  2. HERCEPTIN [Concomitant]
     Active Substance: TRASTUZUMAB
  3. TUKYSA [Suspect]
     Active Substance: TUCATINIB
     Indication: HER2 POSITIVE BREAST CANCER
     Dosage: 150 MG
     Route: 048
     Dates: start: 202006
  4. TUKYSA [Suspect]
     Active Substance: TUCATINIB
     Dosage: 5 DF, QHS
  5. ZOFRAN [Suspect]
     Active Substance: ONDANSETRON HYDROCHLORIDE
     Indication: PRODUCT USED FOR UNKNOWN INDICATION
     Dosage: UNK
  6. TUKYSA [Suspect]
     Active Substance: TUCATINIB
     Dosage: 4 DF, QAM
  7. XELODA [Suspect]
     Active Substance: CAPECITABINE
     Indication: HER2 POSITIVE BREAST CANCER
     Dosage: UNK

REACTIONS (10)
  - Decreased appetite [Unknown]
  - Arthralgia [Unknown]
  - Nausea [Recovering/Resolving]
  - Tumour marker abnormal [Unknown]
  - Diarrhoea [Recovered/Resolved]
  - Adverse drug reaction [Unknown]
  - Product use complaint [Unknown]
  - Product dose omission issue [Unknown]
  - Fatigue [Unknown]
  - Palmar-plantar erythrodysaesthesia syndrome [Unknown]
